FAERS Safety Report 4964231-4 (Version None)
Quarter: 2006Q2

REPORT INFORMATION
  Report Type: 
  Country: None (occurrence: None)
  Receive Date: 20060406
  Receipt Date: 20060330
  Transmission Date: 20061013
  Serious: Yes (Death)
  Sender: FDA-Public Use
  Company Number: CA-BOEHRINGER INGELHEIM PHARMACEUTICALS, INC.-2006-CN-00196CN

PATIENT
  Age: 80 Year
  Sex: Female

DRUGS (2)
  1. MICARDIS [Suspect]
     Indication: DIABETIC NEPHROPATHY
  2. MICARDIS [Suspect]
     Indication: HYPERTENSION

REACTIONS (4)
  - CREATININE RENAL CLEARANCE INCREASED [None]
  - DEATH [None]
  - DRUG INEFFECTIVE [None]
  - RENAL FAILURE [None]
